FAERS Safety Report 20627497 (Version 1)
Quarter: 2022Q1

REPORT INFORMATION
  Report Type: Spontaneous
  Country: US (occurrence: None)
  Receive Date: 20220322
  Receipt Date: 20220322
  Transmission Date: 20220423
  Serious: Yes (Disabling)
  Sender: FDA-Public Use
  Company Number: None

PATIENT
  Age: 36 Year
  Sex: Female
  Weight: 83.25 kg

DRUGS (1)
  1. SUBLOCADE [Suspect]
     Active Substance: BUPRENORPHINE
     Indication: Dependence
     Dosage: OTHER QUANTITY : 1 INJECTION(S);?OTHER FREQUENCY : EVERY MONTH FOR 3;?
     Route: 058
     Dates: start: 20201120, end: 20201218

REACTIONS (6)
  - Laboratory test abnormal [None]
  - Adrenal insufficiency [None]
  - Mental disorder [None]
  - Panic reaction [None]
  - Anxiety [None]
  - Stress [None]

NARRATIVE: CASE EVENT DATE: 20220319
